FAERS Safety Report 25192080 (Version 1)
Quarter: 2025Q2

REPORT INFORMATION
  Report Type: Spontaneous
  Country: US (occurrence: None)
  Receive Date: 20250412
  Receipt Date: 20250412
  Transmission Date: 20250717
  Serious: Yes (Hospitalization)
  Sender: FDA-CTU
  Company Number: None

PATIENT
  Age: 64 Year
  Sex: Male
  Weight: 32.75 kg

DRUGS (2)
  1. CABAZITAXEL [Suspect]
     Active Substance: CABAZITAXEL
     Dates: end: 20250325
  2. PREDNISONE [Suspect]
     Active Substance: PREDNISONE
     Dates: end: 20250331

REACTIONS (17)
  - Chest pain [None]
  - Cardiac failure [None]
  - Atelectasis [None]
  - Pulmonary fibrosis [None]
  - Aortic dilatation [None]
  - Metastatic neoplasm [None]
  - Cystitis [None]
  - Urinary tract infection [None]
  - Bladder hypertrophy [None]
  - Metastases to bone [None]
  - Nephrolithiasis [None]
  - Hydronephrosis [None]
  - Renal cyst [None]
  - Dilatation intrahepatic duct acquired [None]
  - Ampulla of Vater stenosis [None]
  - Compression fracture [None]
  - Urinary tract disorder [None]

NARRATIVE: CASE EVENT DATE: 20250331
